FAERS Safety Report 9571006 (Version 1)
Quarter: 2013Q4

REPORT INFORMATION
  Report Type: Report from Study
  Country: JP (occurrence: JP)
  Receive Date: 20131001
  Receipt Date: 20131001
  Transmission Date: 20140711
  Serious: Yes (Other)
  Sender: FDA-Public Use
  Company Number: JP-SHIRE-CQT4-2013-00007

PATIENT
  Age: 54 Year
  Sex: Female
  Weight: 47.4 kg

DRUGS (20)
  1. 422 (ANAGRELIDE) [Suspect]
     Indication: ESSENTIAL THROMBOCYTHAEMIA
     Dosage: 3.0 MG, UNK
     Route: 048
     Dates: start: 20121025, end: 20130219
  2. 422 (ANAGRELIDE) [Suspect]
     Dosage: 1 MG, UNK
     Route: 048
     Dates: start: 20111006, end: 20111027
  3. 422 (ANAGRELIDE) [Suspect]
     Dosage: 1.5 MG, UNK
     Route: 048
     Dates: start: 20111028, end: 20111103
  4. 422 (ANAGRELIDE) [Suspect]
     Dosage: 2 MG, UNK
     Route: 048
     Dates: start: 20111104, end: 20111110
  5. 422 (ANAGRELIDE) [Suspect]
     Dosage: 2.5 MG, UNK
     Route: 048
     Dates: start: 20111111, end: 20111117
  6. 422 (ANAGRELIDE) [Suspect]
     Dosage: 3.0 MG, 1X/DAY:QD
     Route: 048
     Dates: start: 20111118, end: 20111222
  7. 422 (ANAGRELIDE) [Suspect]
     Dosage: 3.5 MG, UNK
     Route: 048
     Dates: start: 20111223, end: 20120105
  8. 422 (ANAGRELIDE) [Suspect]
     Dosage: 4.0 MG, UNK
     Route: 048
     Dates: start: 20120106, end: 20120725
  9. 422 (ANAGRELIDE) [Suspect]
     Dosage: 3.5 MG, UNK
     Route: 048
     Dates: start: 20120726, end: 20120815
  10. 422 (ANAGRELIDE) [Suspect]
     Dosage: 3.0 MG, UNK
     Route: 048
     Dates: start: 20120816, end: 20120926
  11. 422 (ANAGRELIDE) [Suspect]
     Dosage: 2.5 MG, UNK
     Route: 048
     Dates: start: 20120927, end: 20121024
  12. 422 (ANAGRELIDE) [Suspect]
     Dosage: 3.5 MG, UNK
     Route: 048
     Dates: start: 20130220, end: 20130327
  13. 422 (ANAGRELIDE) [Suspect]
     Dosage: 4.0 MG, UNK
     Route: 048
     Dates: start: 20130328, end: 20130425
  14. 422 (ANAGRELIDE) [Suspect]
     Dosage: 4.5 MG, UNK
     Route: 048
     Dates: start: 20130426, end: 20130822
  15. 422 (ANAGRELIDE) [Suspect]
     Dosage: 4 MG, UNK
     Route: 048
     Dates: start: 20130823, end: 20130914
  16. BAYASPIRIN [Concomitant]
     Indication: ESSENTIAL THROMBOCYTHAEMIA
     Dosage: UNK
  17. SELBEX [Concomitant]
     Indication: GASTRITIS PROPHYLAXIS
     Dosage: UNK
  18. KINDAVATE [Concomitant]
     Indication: RASH
     Dosage: UNK
     Dates: start: 20120216
  19. PLAVIX [Concomitant]
     Indication: CEREBRAL INFARCTION
     Dosage: UNK
     Dates: start: 20130220
  20. MAINTATE [Concomitant]
     Indication: PALPITATIONS
     Dosage: UNK
     Dates: start: 20130523

REACTIONS (1)
  - Cerebral infarction [Not Recovered/Not Resolved]
